FAERS Safety Report 7790566-6 (Version None)
Quarter: 2011Q3

REPORT INFORMATION
  Report Type: 
  Country: None (occurrence: None)
  Receive Date: 20110930
  Receipt Date: 20110922
  Transmission Date: 20111222
  Serious: Yes (Hospitalization)
  Sender: FDA-Public Use
  Company Number: JP-SHIRE-ALL1-2011-03335

PATIENT
  Age: 80 Year
  Sex: Female

DRUGS (6)
  1. FOSRENOL [Suspect]
     Indication: HYPERPHOSPHATAEMIA
     Dosage: 2250 MG, UNKNOWN
     Route: 048
     Dates: start: 20110427, end: 20110722
  2. OLOPATADINE HCL [Concomitant]
     Indication: PRURITUS
     Dosage: 10 MG, UNKNOWN
     Route: 048
     Dates: start: 20060905
  3. METROC [Concomitant]
     Indication: HYPOTENSION
     Dosage: 20 MG, UNKNOWN
     Route: 048
     Dates: start: 20080402
  4. OMERAP [Concomitant]
     Indication: GASTROOESOPHAGEAL REFLUX DISEASE
     Dosage: 200 MG, UNKNOWN
     Route: 048
     Dates: start: 20051115
  5. DOPS [Concomitant]
     Indication: HYPOTENSION
     Dosage: 400 MG, UNKNOWN
     Route: 048
     Dates: start: 20080402
  6. LAMISIL [Concomitant]
     Indication: ONYCHOMYCOSIS
     Dosage: 125 MG, UNKNOWN
     Route: 048
     Dates: start: 20100903

REACTIONS (2)
  - C-REACTIVE PROTEIN INCREASED [None]
  - ABDOMINAL PAIN LOWER [None]
